FAERS Safety Report 18130101 (Version 1)
Quarter: 2020Q3

REPORT INFORMATION
  Report Type: Spontaneous
  Country: HR (occurrence: HR)
  Receive Date: 20200810
  Receipt Date: 20200810
  Transmission Date: 20201103
  Serious: Yes (Other)
  Sender: FDA-Public Use
  Company Number: HR-TEVA-2020-HR-1811767

PATIENT
  Age: 14 Year
  Sex: Female
  Weight: 70 kg

DRUGS (6)
  1. AMOKSICILIN [Suspect]
     Active Substance: AMOXICILLIN
     Route: 048
     Dates: start: 20200521, end: 20200521
  2. IBUPROFEN. [Suspect]
     Active Substance: IBUPROFEN
     Dosage: 10 DOSAGE FORMS, DF = 1 TABLET ASSUMES SHE TOOK 10 TBL EACH
     Route: 048
     Dates: start: 20200521, end: 20200521
  3. LOPERAMID [Suspect]
     Active Substance: LOPERAMIDE
     Route: 048
     Dates: start: 20200521, end: 20200521
  4. SALOFALK (MESALAZINE) [Suspect]
     Active Substance: MESALAMINE
     Route: 048
     Dates: start: 20200521, end: 20200521
  5. NINUR [Suspect]
     Active Substance: NITROFURANTOIN
     Route: 048
     Dates: start: 20200521, end: 20200521
  6. PARACETAMOL [Suspect]
     Active Substance: ACETAMINOPHEN
     Dosage: 10 DOSAGE FORMS,,DF = 1 TABLET ,ASSUMES SHE TOOK 10 TBL EACH
     Route: 048
     Dates: start: 20200521, end: 20200521

REACTIONS (3)
  - Intentional overdose [Unknown]
  - Suicide attempt [Unknown]
  - Somnolence [Unknown]

NARRATIVE: CASE EVENT DATE: 20200521
